APPROVED DRUG PRODUCT: AXID
Active Ingredient: NIZATIDINE
Strength: 15MG/ML **Federal Register determination that product was not discontinued or withdrawn for safety or effectiveness reasons**
Dosage Form/Route: SOLUTION;ORAL
Application: N021494 | Product #001
Applicant: BRAINTREE LABORATORIES INC
Approved: May 25, 2004 | RLD: Yes | RS: No | Type: DISCN